FAERS Safety Report 17533193 (Version 1)
Quarter: 2020Q1

REPORT INFORMATION
  Report Type: Report from Study
  Country: CO (occurrence: CO)
  Receive Date: 20200312
  Receipt Date: 20200312
  Transmission Date: 20200409
  Serious: Yes (Hospitalization)
  Sender: FDA-Public Use
  Company Number: CO-ROCHE-2421293

PATIENT
  Sex: Female

DRUGS (2)
  1. AVASTIN [Suspect]
     Active Substance: BEVACIZUMAB
     Indication: PRODUCT USED FOR UNKNOWN INDICATION
     Route: 065
  2. XELODA [Suspect]
     Active Substance: CAPECITABINE
     Indication: PRODUCT USED FOR UNKNOWN INDICATION
     Route: 048

REACTIONS (10)
  - Venous injury [Unknown]
  - Vomiting [Unknown]
  - Malaise [Unknown]
  - Gait inability [Unknown]
  - Constipation [Unknown]
  - Skin discolouration [Unknown]
  - Burning sensation [Unknown]
  - Diarrhoea [Unknown]
  - Peripheral swelling [Unknown]
  - Peripheral coldness [Unknown]
